FAERS Safety Report 18304296 (Version 1)
Quarter: 2020Q3

REPORT INFORMATION
  Report Type: Spontaneous
  Country: US (occurrence: US)
  Receive Date: 20200923
  Receipt Date: 20200923
  Transmission Date: 20201103
  Serious: Yes (Other)
  Sender: FDA-Public Use
  Company Number: US-ZO SKIN HEALTH-2020ZOS00012

PATIENT
  Age: 31 Year
  Sex: Female

DRUGS (1)
  1. TRETINOIN. [Suspect]
     Active Substance: TRETINOIN
     Indication: ACNE CYSTIC
     Dosage: 0.025%, A FEW TIMES WEEKLY
     Route: 061

REACTIONS (2)
  - Exposure during pregnancy [Recovered/Resolved]
  - Choroid melanoma [Recovered/Resolved]
